FAERS Safety Report 5171192-4 (Version None)
Quarter: 2006Q4

REPORT INFORMATION
  Report Type: 
  Country: None (occurrence: None)
  Receive Date: 20061213
  Receipt Date: 20060109
  Transmission Date: 20070319
  Serious: Yes (Other)
  Sender: FDA-Public Use
  Company Number: US-AMGEN-STX164102

PATIENT
  Sex: Female
  Weight: 59.9 kg

DRUGS (16)
  1. ENBREL [Suspect]
     Indication: RHEUMATOID ARTHRITIS
     Dates: start: 19991223, end: 20000701
  2. METHOTREXATE [Concomitant]
     Indication: RHEUMATOID ARTHRITIS
     Dates: start: 19900101, end: 20030201
  3. PREDNISONE TAB [Concomitant]
     Route: 048
  4. SYNTHROID [Concomitant]
     Route: 048
  5. ULTRAM [Concomitant]
     Route: 048
  6. AZULFIDINE [Concomitant]
     Route: 048
  7. SINGULAIR [Concomitant]
  8. PROCARDIA [Concomitant]
     Route: 048
  9. ZOLOFT [Concomitant]
     Route: 048
  10. GOLD [Concomitant]
     Dates: start: 19870101, end: 19870101
  11. MOBIC [Concomitant]
     Route: 048
  12. AMBIEN [Concomitant]
     Route: 048
  13. BENICAR [Concomitant]
     Route: 048
  14. CITRACAL [Concomitant]
     Route: 048
  15. FOLIC ACID [Concomitant]
  16. ORAL CONTRACEPTIVE NOS [Concomitant]

REACTIONS (2)
  - LUPUS-LIKE SYNDROME [None]
  - TONGUE NEOPLASM MALIGNANT STAGE UNSPECIFIED [None]
